FAERS Safety Report 19490428 (Version 1)
Quarter: 2021Q3

REPORT INFORMATION
  Report Type: Spontaneous
  Country: CL (occurrence: CL)
  Receive Date: 20210705
  Receipt Date: 20210705
  Transmission Date: 20211014
  Serious: Yes (Other)
  Sender: FDA-Public Use
  Company Number: CL-MACLEODS PHARMACEUTICALS US LTD-MAC2021031714

PATIENT

DRUGS (1)
  1. TENOFOVIR [Suspect]
     Active Substance: TENOFOVIR
     Indication: HIV INFECTION
     Dosage: UNK
     Route: 065

REACTIONS (9)
  - Hypophosphataemia [Recovered/Resolved]
  - Femur fracture [Recovered/Resolved]
  - Anaemia [Unknown]
  - Hypoalbuminaemia [Unknown]
  - Hypoproteinaemia [Recovered/Resolved]
  - Hypokalaemia [Recovered/Resolved]
  - Vitamin D deficiency [Recovered/Resolved]
  - Thrombocytopenia [Unknown]
  - Hypocalcaemia [Recovered/Resolved]
